FAERS Safety Report 8092475-4 (Version None)
Quarter: 2012Q1

REPORT INFORMATION
  Report Type: 
  Country: None (occurrence: None)
  Receive Date: 20120128
  Receipt Date: 20110728
  Transmission Date: 20120608
  Serious: No
  Sender: FDA-Public Use
  Company Number: US-ABBOTT-11P-163-0842396-00

PATIENT
  Sex: Female
  Weight: 79.45 kg

DRUGS (7)
  1. VYTORIN [Concomitant]
     Indication: BLOOD CHOLESTEROL INCREASED
  2. ASPIRIN [Concomitant]
     Indication: PROPHYLAXIS
  3. HUMIRA [Suspect]
     Indication: RHEUMATOID ARTHRITIS
     Dates: start: 20100101
  4. TOPROL-XL [Concomitant]
     Indication: HYPERTENSION
  5. CALCIUM [Concomitant]
     Indication: MINERAL SUPPLEMENTATION
  6. DIOVAN [Concomitant]
     Indication: HYPERTENSION
  7. FISH OIL [Concomitant]
     Indication: MINERAL SUPPLEMENTATION

REACTIONS (1)
  - ALOPECIA [None]
